FAERS Safety Report 4577870-X (Version None)
Quarter: 2005Q1

REPORT INFORMATION
  Report Type: 
  Country: None (occurrence: None)
  Receive Date: 20050209
  Receipt Date: 20050127
  Transmission Date: 20050727
  Serious: Yes (Hospitalization)
  Sender: FDA-Public Use
  Company Number: 2005014257

PATIENT
  Age: 70 Year
  Sex: Female
  Weight: 68 kg

DRUGS (2)
  1. AROMASIN [Suspect]
     Indication: BREAST CANCER
     Dosage: 25 MG (DAILY), ORAL
     Route: 048
     Dates: start: 20041102, end: 20041221
  2. PACLITAXEL [Suspect]
     Indication: BREAST CANCER
     Dosage: 100 MG (EVERY MONTH), INTRAVENOUS
     Route: 042
     Dates: start: 20030701

REACTIONS (1)
  - EPISTAXIS [None]
